FAERS Safety Report 5288250-6 (Version None)
Quarter: 2007Q1

REPORT INFORMATION
  Report Type: 
  Country: None (occurrence: None)
  Receive Date: 20070118
  Receipt Date: 20061109
  Transmission Date: 20070707
  Serious: Yes (Other)
  Sender: FDA-Public Use
  Company Number: HQWYE364214NOV06

PATIENT
  Age: 54 Year
  Sex: Female
  Weight: 90.8 kg

DRUGS (3)
  1. ADVIL PM [Suspect]
     Indication: INSOMNIA
     Dosage: 2 CAPSULES 1X PER 1 DAY; ORAL
     Route: 048
     Dates: start: 20061001, end: 20061101
  2. ADVIL PM [Suspect]
     Indication: MUSCULOSKELETAL PAIN
     Dosage: 2 CAPSULES 1X PER 1 DAY; ORAL
     Route: 048
     Dates: start: 20061001, end: 20061101
  3. ADVIL PM [Suspect]
     Indication: PAIN IN EXTREMITY
     Dosage: 2 CAPSULES 1X PER 1 DAY; ORAL
     Route: 048
     Dates: start: 20061001, end: 20061101

REACTIONS (1)
  - HEART RATE INCREASED [None]
